FAERS Safety Report 5698289-4 (Version None)
Quarter: 2008Q2

REPORT INFORMATION
  Report Type: 
  Country: None (occurrence: None)
  Receive Date: 20080408
  Receipt Date: 20080401
  Transmission Date: 20081010
  Serious: Yes (Other)
  Sender: FDA-Public Use
  Company Number: US-BOEHRINGER INGELHEIM GMBH, GERMANY-2008-BP-05105BP

PATIENT
  Age: 15 Month
  Sex: Female

DRUGS (3)
  1. FLOMAX [Suspect]
     Indication: URETERIC DILATATION
     Route: 015
  2. PROCARDIA [Suspect]
     Route: 015
  3. TRIBUTYLENE [Suspect]
     Route: 015

REACTIONS (3)
  - CEREBRAL PALSY [None]
  - CONVULSION [None]
  - SENSORY INTEGRATIVE DYSFUNCTION [None]
